FAERS Safety Report 7476836-X (Version None)
Quarter: 2011Q2

REPORT INFORMATION
  Report Type: 
  Country: None (occurrence: None)
  Receive Date: 20110512
  Receipt Date: 20110504
  Transmission Date: 20111010
  Serious: Yes (Other)
  Sender: FDA-Public Use
  Company Number: PHHY2011BR38551

PATIENT
  Age: 87 Year
  Sex: Female

DRUGS (2)
  1. EXELON [Suspect]
     Dosage: 9 MG/5CM2
     Route: 062
  2. EXELON [Suspect]
     Dosage: 18 MG/10CM2
     Route: 062

REACTIONS (4)
  - APPLICATION SITE HYPERSENSITIVITY [None]
  - APPLICATION SITE ERYTHEMA [None]
  - SWOLLEN TONGUE [None]
  - DYSPNOEA [None]
